FAERS Safety Report 24383021 (Version 1)
Quarter: 2024Q4

REPORT INFORMATION
  Report Type: Spontaneous
  Country: JP (occurrence: None)
  Receive Date: 20241001
  Receipt Date: 20241001
  Transmission Date: 20250114
  Serious: Yes (Death, Other)
  Sender: UNICHEM
  Company Number: JP-Unichem Pharmaceuticals (USA) Inc-UCM202409-001208

PATIENT
  Age: 65 Year
  Sex: Female

DRUGS (1)
  1. METRONIDAZOLE [Suspect]
     Active Substance: METRONIDAZOLE
     Indication: Liver abscess
     Dosage: UNKNOWN

REACTIONS (2)
  - Aphasia [Fatal]
  - Encephalopathy [Fatal]
